FAERS Safety Report 8478872-3 (Version None)
Quarter: 2012Q2

REPORT INFORMATION
  Report Type: 
  Country: None (occurrence: None)
  Receive Date: 20120629
  Receipt Date: 20120627
  Transmission Date: 20120825
  Serious: Yes (Other)
  Sender: FDA-Public Use
  Company Number: US-PFIZER INC-2012155120

PATIENT
  Sex: Female

DRUGS (3)
  1. ZOLOFT [Suspect]
     Dosage: UNK
  2. NEURONTIN [Suspect]
     Dosage: UNK
     Route: 048
  3. LIPITOR [Suspect]
     Dosage: UNK
     Route: 048

REACTIONS (2)
  - THYROID DISORDER [None]
  - HYPERTENSION [None]
